FAERS Safety Report 5491952-X (Version None)
Quarter: 2007Q4

REPORT INFORMATION
  Report Type: 
  Country: None (occurrence: None)
  Receive Date: 20071018
  Receipt Date: 20071018
  Transmission Date: 20080405
  Serious: No
  Sender: FDA-Public Use
  Company Number: None

PATIENT
  Age: 54 Year
  Sex: Male

DRUGS (1)
  1. FINASTERIDE [Suspect]
     Indication: BENIGN PROSTATIC HYPERPLASIA
     Dosage: 5MG  EVERY DAY  SQ
     Route: 058
     Dates: start: 20070503, end: 20070822

REACTIONS (2)
  - LIBIDO DECREASED [None]
  - RETROGRADE EJACULATION [None]
